FAERS Safety Report 4272526-5 (Version None)
Quarter: 2004Q1

REPORT INFORMATION
  Report Type: 
  Country: None (occurrence: None)
  Receive Date: 20040114
  Receipt Date: 20040106
  Transmission Date: 20041129
  Serious: Yes (Death, Hospitalization, Other)
  Sender: FDA-Public Use
  Company Number: 2003-03-1471

PATIENT
  Age: 55 Year
  Sex: Female
  Weight: 90.7194 kg

DRUGS (26)
  1. VANCERIL DOUBLE STRENGTH [Suspect]
     Indication: ASTHMA
     Dosage: 4 PUFFS BID ORAL AER INH
     Route: 055
     Dates: start: 19980306, end: 20000317
  2. ATROVENT [Concomitant]
  3. SEREVENT [Concomitant]
  4. ZYRTEC [Concomitant]
  5. CLARITIN [Concomitant]
  6. ZOLOFT [Concomitant]
  7. PROVENTIL [Concomitant]
  8. NASONEX [Concomitant]
  9. ACCOLATE [Concomitant]
  10. SINGULAIR [Concomitant]
  11. ATIVAN [Concomitant]
  12. ZOVIRAX [Concomitant]
  13. ELAVIL [Concomitant]
  14. DELTASONE [Concomitant]
  15. BIAXIN [Concomitant]
  16. DURATUSS [Concomitant]
  17. LIDEX [Concomitant]
  18. KENALOG [Concomitant]
  19. LAC-HYDRIN [Concomitant]
  20. ULTRAVATE [Concomitant]
  21. VANCENASE [Concomitant]
  22. DECONSAL TABLETS [Concomitant]
  23. HISMANAL [Concomitant]
  24. MEDROL [Concomitant]
  25. PROZAC [Concomitant]
  26. ZYRTEC [Concomitant]

REACTIONS (6)
  - ASTHMA [None]
  - CARDIO-RESPIRATORY ARREST [None]
  - CYANOSIS [None]
  - DYSPNOEA [None]
  - PHARMACEUTICAL PRODUCT COMPLAINT [None]
  - RESPIRATORY DISTRESS [None]
